FAERS Safety Report 14033588 (Version 1)
Quarter: 2017Q4

REPORT INFORMATION
  Report Type: Spontaneous
  Country: RU (occurrence: RU)
  Receive Date: 20171003
  Receipt Date: 20171003
  Transmission Date: 20180321
  Serious: Yes (Hospitalization)
  Sender: FDA-Public Use
  Company Number: RU-ASTRAZENECA-2017SE99310

PATIENT
  Age: 63 Year
  Sex: Female
  Weight: 115 kg

DRUGS (8)
  1. AMLODIPIN [Concomitant]
     Active Substance: AMLODIPINE BESYLATE
  2. CARDIOMAGNYL [Concomitant]
     Active Substance: ASPIRIN\MAGNESIUM HYDROXIDE
  3. BRILINTA [Suspect]
     Active Substance: TICAGRELOR
     Indication: STENT PLACEMENT
     Route: 048
     Dates: start: 20161107
  4. EUTHYROX [Concomitant]
     Active Substance: LEVOTHYROXINE SODIUM
  5. BRILINTA [Suspect]
     Active Substance: TICAGRELOR
     Indication: ACUTE CORONARY SYNDROME
     Route: 048
     Dates: start: 20161107
  6. CONCOR [Concomitant]
     Active Substance: BISOPROLOL FUMARATE
  7. TULIP (ATORVASTATIN CALCIUM) [Concomitant]
     Active Substance: ATORVASTATIN
  8. OMEZ [Concomitant]
     Active Substance: OMEPRAZOLE

REACTIONS (3)
  - Chest pain [Unknown]
  - Blood glucose increased [Unknown]
  - Gastritis erosive [Unknown]
